FAERS Safety Report 12740985 (Version 3)
Quarter: 2017Q1

REPORT INFORMATION
  Report Type: Spontaneous
  Country: US (occurrence: US)
  Receive Date: 20160914
  Receipt Date: 20170104
  Transmission Date: 20170428
  Serious: No
  Sender: FDA-Public Use
  Company Number: US-009507513-1609USA001144

PATIENT
  Age: 80 Year
  Sex: Female

DRUGS (4)
  1. VITAMINS (UNSPECIFIED) [Concomitant]
     Active Substance: VITAMINS
     Dosage: UNK
  2. ASMANEX [Suspect]
     Active Substance: MOMETASONE FUROATE
     Dosage: 220 MICROGRAM, BID
     Route: 055
     Dates: start: 2016, end: 2016
  3. ASMANEX [Suspect]
     Active Substance: MOMETASONE FUROATE
     Indication: ASTHMA
     Dosage: 220 MICROGRAM, UNKNOWN
     Route: 055
  4. ASMANEX [Suspect]
     Active Substance: MOMETASONE FUROATE
     Dosage: 220 MICROGRAM, ONCE A DAY
     Dates: start: 2016

REACTIONS (16)
  - Stomatitis [Recovering/Resolving]
  - Back pain [Unknown]
  - Oral fungal infection [Unknown]
  - Salivary hypersecretion [Unknown]
  - Bronchitis [Unknown]
  - Fall [Unknown]
  - Oral herpes [Unknown]
  - Glossitis [Recovering/Resolving]
  - Tongue discomfort [Recovered/Resolved]
  - Myalgia [Unknown]
  - Bruxism [Unknown]
  - Dysgeusia [Unknown]
  - Product use issue [Unknown]
  - Bronchitis [Recovering/Resolving]
  - Product taste abnormal [Unknown]
  - Oral mucosal blistering [Unknown]

NARRATIVE: CASE EVENT DATE: 2015
